FAERS Safety Report 21029010 (Version 1)
Quarter: 2022Q3

REPORT INFORMATION
  Report Type: Spontaneous
  Country: TR (occurrence: TR)
  Receive Date: 20220630
  Receipt Date: 20220630
  Transmission Date: 20221027
  Serious: Yes (Other)
  Sender: FDA-Public Use
  Company Number: TR-NOVARTISPH-NVSC2022TR146347

PATIENT
  Age: 65 Year
  Sex: Male

DRUGS (1)
  1. CARBAMAZEPINE [Suspect]
     Active Substance: CARBAMAZEPINE
     Indication: Epilepsy
     Dosage: 200 MG, TID, LONG TERM USE
     Route: 065

REACTIONS (1)
  - B precursor type acute leukaemia [Unknown]
